FAERS Safety Report 16982094 (Version 1)
Quarter: 2019Q4

REPORT INFORMATION
  Report Type: Report from Study
  Country: FR (occurrence: FR)
  Receive Date: 20191101
  Receipt Date: 20191101
  Transmission Date: 20200122
  Serious: Yes (Death, Other)
  Sender: FDA-Public Use
  Company Number: FR-TAKEDA-2019TUS061408

PATIENT

DRUGS (3)
  1. BENZAMYCINE [Suspect]
     Active Substance: BENZOYL PEROXIDE\ERYTHROMYCIN
     Indication: PRODUCT USED FOR UNKNOWN INDICATION
     Dosage: UNK
     Route: 065
  2. BORTEZOMIB. [Suspect]
     Active Substance: BORTEZOMIB
     Indication: PRODUCT USED FOR UNKNOWN INDICATION
     Dosage: UNK
     Route: 065
  3. POMALIDOMIDE [Suspect]
     Active Substance: POMALIDOMIDE
     Indication: PRODUCT USED FOR UNKNOWN INDICATION
     Dosage: UNK
     Route: 065

REACTIONS (11)
  - Infection [Unknown]
  - Death [Fatal]
  - Hepatitis [Unknown]
  - Gastrointestinal disorder [Unknown]
  - Toxicity to various agents [Unknown]
  - Toxic skin eruption [Unknown]
  - Acute kidney injury [Unknown]
  - General physical health deterioration [Unknown]
  - Cardiovascular disorder [Unknown]
  - Disease progression [Unknown]
  - Nervous system disorder [Unknown]
